FAERS Safety Report 10181867 (Version 2)
Quarter: 2014Q2

REPORT INFORMATION
  Report Type: Spontaneous
  Country: US (occurrence: US)
  Receive Date: 20140519
  Receipt Date: 20140519
  Transmission Date: 20141212
  Serious: No
  Sender: FDA-Public Use
  Company Number: US-GILEAD-2014-0099288

PATIENT
  Age: 37 Year
  Sex: Female

DRUGS (12)
  1. SOVALDI [Suspect]
     Indication: HEPATITIS C
     Dosage: 400 MG, QD
     Route: 048
     Dates: start: 20140329
  2. RIBAVIRIN [Concomitant]
     Indication: HEPATITIS C
     Dosage: 600 MG, QD (IN THE AM)
     Route: 048
     Dates: start: 20140329
  3. RIBAVIRIN [Concomitant]
     Dosage: 400 MG, QD (IN THE PM)
     Route: 048
     Dates: start: 20140329
  4. ADDERALL [Concomitant]
     Dosage: 5 MG, QD
  5. ALPRAZOLAM [Concomitant]
     Dosage: 1 MG, TID
  6. CLONIDINE                          /00171102/ [Concomitant]
     Dosage: 0.1 MG, BID
  7. COLACE [Concomitant]
     Dosage: 1 CAPSULE (DF), BID
  8. METHYLPREDNISOLONE [Concomitant]
     Dosage: 8 MG, BID
  9. MIRENA [Concomitant]
     Dosage: 52 MG, UNK
     Route: 015
  10. NEURONTIN [Concomitant]
     Dosage: 800 MG, QID
  11. TOPAMAX [Concomitant]
     Dosage: 25 MG, AT HS PRN
  12. CELEXA                             /00582602/ [Concomitant]
     Dosage: 40 MG, QD

REACTIONS (3)
  - Blood glucose abnormal [Unknown]
  - Blood glucose abnormal [Recovered/Resolved]
  - Hypokalaemia [Recovered/Resolved]
